FAERS Safety Report 8481797-0 (Version None)
Quarter: 2012Q3

REPORT INFORMATION
  Report Type: 
  Country: None (occurrence: None)
  Receive Date: 20120702
  Receipt Date: 20120622
  Transmission Date: 20120928
  Serious: Yes (Hospitalization)
  Sender: FDA-Public Use
  Company Number: BR-ASTRAZENECA-2012SE42719

PATIENT
  Age: 54 Year
  Sex: Male
  Weight: 83 kg

DRUGS (5)
  1. PLAVIX [Suspect]
     Indication: MYOCARDIAL INFARCTION
     Dosage: DAILY FREQUENCY
     Route: 048
     Dates: start: 20060101
  2. CLONAZEPAM [Concomitant]
     Route: 048
  3. CRESTOR [Suspect]
     Indication: BLOOD CHOLESTEROL INCREASED
     Route: 048
     Dates: start: 20060101
  4. ASPIRIN PREVENT [Concomitant]
     Route: 048
  5. PANTOPRAZOLE [Concomitant]
     Route: 048

REACTIONS (2)
  - PAIN [None]
  - CORONARY ARTERY OCCLUSION [None]
